FAERS Safety Report 13959300 (Version 1)
Quarter: 2017Q3

REPORT INFORMATION
  Report Type: Report from Study
  Country: ZA (occurrence: ZA)
  Receive Date: 20170912
  Receipt Date: 20170912
  Transmission Date: 20171128
  Serious: Yes (Hospitalization)
  Sender: FDA-Public Use
  Company Number: PHHY2017ZA131964

PATIENT
  Sex: Female

DRUGS (1)
  1. CO-ZOMEVEK [Suspect]
     Active Substance: HYDROCHLOROTHIAZIDE\VALSARTAN
     Indication: HYPERTENSION
     Dosage: 165/12.5 MG
     Route: 048

REACTIONS (1)
  - Palpitations [Unknown]
